FAERS Safety Report 22182866 (Version 3)
Quarter: 2023Q2

REPORT INFORMATION
  Report Type: Spontaneous
  Country: US (occurrence: US)
  Receive Date: 20230406
  Receipt Date: 20230601
  Transmission Date: 20230722
  Serious: No
  Sender: FDA-Public Use
  Company Number: US-ALLERGAN-2242826US

PATIENT
  Age: 60 Year
  Sex: Female
  Weight: 52.16 kg

DRUGS (7)
  1. QULIPTA [Suspect]
     Active Substance: ATOGEPANT
     Indication: Migraine
     Dosage: 40 MG
     Route: 048
     Dates: start: 202211
  2. QULIPTA [Suspect]
     Active Substance: ATOGEPANT
     Indication: Migraine prophylaxis
     Dosage: 60 MG
     Dates: start: 20220213
  3. QULIPTA [Suspect]
     Active Substance: ATOGEPANT
     Indication: Migraine
     Dosage: 60 MG
     Route: 048
     Dates: start: 20220113
  4. QULIPTA [Suspect]
     Active Substance: ATOGEPANT
     Dosage: UNK
     Route: 048
     Dates: start: 20220102
  5. QULIPTA [Suspect]
     Active Substance: ATOGEPANT
     Dosage: 40 MG
     Route: 048
     Dates: start: 20220101
  6. NARATRIPTAN [Concomitant]
     Active Substance: NARATRIPTAN HYDROCHLORIDE
     Indication: Migraine
     Dosage: 2.5 MG
     Dates: start: 20221227
  7. CALCIUM CARBONATE [Concomitant]
     Active Substance: CALCIUM CARBONATE
     Dosage: 300 MG
     Dates: start: 202203

REACTIONS (9)
  - COVID-19 [Recovering/Resolving]
  - Rash [Recovering/Resolving]
  - Overdose [Unknown]
  - Skin irritation [Not Recovered/Not Resolved]
  - Skin burning sensation [Not Recovered/Not Resolved]
  - Decreased appetite [Recovered/Resolved]
  - Weight decreased [Unknown]
  - Drug ineffective [Unknown]
  - Headache [Unknown]

NARRATIVE: CASE EVENT DATE: 20220101
